FAERS Safety Report 9951793 (Version 2)
Quarter: 2014Q1

REPORT INFORMATION
  Report Type: Report from Study
  Country: US (occurrence: US)
  Receive Date: 20140304
  Receipt Date: 20140304
  Transmission Date: 20141002
  Serious: No
  Sender: FDA-Public Use
  Company Number: US-ABBVIE-13P-163-1042758-00

PATIENT
  Age: 64 Year
  Sex: Female
  Weight: 95.34 kg

DRUGS (5)
  1. HUMIRA [Suspect]
     Indication: PSORIASIS
     Dates: start: 201008, end: 201202
  2. HUMIRA [Suspect]
     Indication: RHEUMATOID ARTHRITIS
  3. HUMIRA [Suspect]
     Indication: PSORIASIS
  4. METFORMIN [Concomitant]
     Indication: DIABETES MELLITUS
  5. GLIPIZIDE [Concomitant]
     Indication: DIABETES MELLITUS

REACTIONS (6)
  - Immune system disorder [Unknown]
  - Respiratory tract infection [Recovered/Resolved]
  - Psoriasis [Not Recovered/Not Resolved]
  - Alopecia [Unknown]
  - Pain [Unknown]
  - Respiratory tract infection [Unknown]
